FAERS Safety Report 5742941-9 (Version None)
Quarter: 2008Q2

REPORT INFORMATION
  Report Type: 
  Country: None (occurrence: None)
  Receive Date: 20080515
  Receipt Date: 20080515
  Transmission Date: 20081010
  Serious: Yes (Other)
  Sender: FDA-Public Use
  Company Number: None

PATIENT
  Age: 56 Year
  Sex: Female
  Weight: 108.4097 kg

DRUGS (4)
  1. LYRICA [Suspect]
     Indication: CHRONIC FATIGUE SYNDROME
     Dosage: BEGIN 75 MG FOR A FEW DAYS DAILY PO BEGIN 150 MG AFTER  5 DAYS DAILY PO
     Route: 048
     Dates: start: 20080328, end: 20080401
  2. LYRICA [Suspect]
     Indication: FIBROMYALGIA
     Dosage: BEGIN 75 MG FOR A FEW DAYS DAILY PO BEGIN 150 MG AFTER  5 DAYS DAILY PO
     Route: 048
     Dates: start: 20080328, end: 20080401
  3. LYRICA [Suspect]
     Indication: CHRONIC FATIGUE SYNDROME
     Dosage: BEGIN 75 MG FOR A FEW DAYS DAILY PO BEGIN 150 MG AFTER  5 DAYS DAILY PO
     Route: 048
     Dates: start: 20080401, end: 20080402
  4. LYRICA [Suspect]
     Indication: FIBROMYALGIA
     Dosage: BEGIN 75 MG FOR A FEW DAYS DAILY PO BEGIN 150 MG AFTER  5 DAYS DAILY PO
     Route: 048
     Dates: start: 20080401, end: 20080402

REACTIONS (1)
  - WHEEZING [None]
